FAERS Safety Report 24181797 (Version 1)
Quarter: 2024Q3

REPORT INFORMATION
  Report Type: Spontaneous
  Country: BR (occurrence: BR)
  Receive Date: 20240807
  Receipt Date: 20240807
  Transmission Date: 20241016
  Serious: Yes (Other)
  Sender: MELINTA THERAPEUTICS
  Company Number: BR-AstraZeneca-2024-261060

PATIENT

DRUGS (2)
  1. METOPROLOL SUCCINATE [Suspect]
     Active Substance: METOPROLOL SUCCINATE
     Indication: Arrhythmia
     Dosage: 25 MILLIGRAM, QD
     Route: 048
     Dates: start: 202401
  2. DAPAGLIFLOZIN [Suspect]
     Active Substance: DAPAGLIFLOZIN
     Indication: Product used for unknown indication
     Dosage: 10 MILLIGRAM, QD
     Route: 048

REACTIONS (8)
  - Arrhythmia [Unknown]
  - Blood glucose increased [Unknown]
  - Hypothyroidism [Unknown]
  - Thyroid mass [Unknown]
  - Vision blurred [Unknown]
  - Peripheral swelling [Unknown]
  - Fatigue [Unknown]
  - Product use issue [Unknown]

NARRATIVE: CASE EVENT DATE: 20240601
